FAERS Safety Report 7943691-0 (Version None)
Quarter: 2011Q4

REPORT INFORMATION
  Report Type: 
  Country: None (occurrence: None)
  Receive Date: 20111128
  Receipt Date: 20111114
  Transmission Date: 20120403
  Serious: Yes (Death, Hospitalization)
  Sender: FDA-Public Use
  Company Number: IR-MYLANLABS-2011S1023736

PATIENT
  Age: 47 Year
  Sex: Female

DRUGS (2)
  1. RISPERIDONE [Suspect]
     Indication: ACUTE PSYCHOSIS
     Dosage: 4MG DAILY
     Route: 065
  2. COTRIM [Interacting]
     Indication: URINARY TRACT INFECTION
     Route: 065

REACTIONS (7)
  - ELECTROCARDIOGRAM QT PROLONGED [None]
  - ELECTROCARDIOGRAM T WAVE PEAKED [None]
  - LOSS OF CONSCIOUSNESS [None]
  - DRUG INTERACTION [None]
  - VENTRICULAR TACHYARRHYTHMIA [None]
  - ELECTROCARDIOGRAM QT INTERVAL ABNORMAL [None]
  - SUDDEN CARDIAC DEATH [None]
